FAERS Safety Report 13558530 (Version 2)
Quarter: 2017Q2

REPORT INFORMATION
  Report Type: Spontaneous
  Country: BR (occurrence: BR)
  Receive Date: 20170518
  Receipt Date: 20170607
  Transmission Date: 20170830
  Serious: Yes (Death)
  Sender: FDA-Public Use
  Company Number: BR-ROCHE-1936154

PATIENT
  Age: 73 Year
  Sex: Female

DRUGS (3)
  1. CHLORAMBUCIL [Suspect]
     Active Substance: CHLORAMBUCIL
     Indication: CHRONIC LYMPHOCYTIC LEUKAEMIA
     Route: 065
  2. GAZYVA [Suspect]
     Active Substance: OBINUTUZUMAB
     Indication: CHRONIC LYMPHOCYTIC LEUKAEMIA
  3. GAZYVA [Suspect]
     Active Substance: OBINUTUZUMAB
     Indication: BONE MARROW FAILURE
     Route: 065

REACTIONS (2)
  - Infection [Fatal]
  - Bone marrow failure [Fatal]
